FAERS Safety Report 19425143 (Version 2)
Quarter: 2022Q2

REPORT INFORMATION
  Report Type: Spontaneous
  Country: FR (occurrence: FR)
  Receive Date: 20210616
  Receipt Date: 20220408
  Transmission Date: 20220721
  Serious: Yes (Congenital Anomaly, Other)
  Sender: FDA-Public Use
  Company Number: FR-ABBVIE-21K-056-3944943-00

PATIENT
  Sex: Male

DRUGS (3)
  1. VALPROATE SODIUM [Suspect]
     Active Substance: VALPROATE SODIUM
     Indication: Maternal exposure timing unspecified
     Route: 064
     Dates: start: 19980819
  2. VALPROATE SODIUM [Suspect]
     Active Substance: VALPROATE SODIUM
     Route: 064
     Dates: start: 19990217, end: 19990428
  3. FOLIC ACID [Concomitant]
     Active Substance: FOLIC ACID
     Indication: Product used for unknown indication

REACTIONS (18)
  - Ear disorder [Unknown]
  - Hypertonia [Unknown]
  - Nasal disorder [Unknown]
  - Pharyngeal disorder [Unknown]
  - Gastrooesophageal reflux disease [Unknown]
  - Visual impairment [Unknown]
  - Respiratory disorder [Unknown]
  - Communication disorder [Unknown]
  - Foetal exposure during pregnancy [Unknown]
  - Mental disorder [Unknown]
  - Cognitive disorder [Unknown]
  - Behaviour disorder [Unknown]
  - Autism spectrum disorder [Unknown]
  - Psychomotor skills impaired [Unknown]
  - Disturbance in social behaviour [Unknown]
  - Language disorder [Unknown]
  - Sleep disorder [Unknown]
  - Dysmorphism [Unknown]
